FAERS Safety Report 7810582-5 (Version None)
Quarter: 2011Q4

REPORT INFORMATION
  Report Type: 
  Country: None (occurrence: None)
  Receive Date: 20111013
  Receipt Date: 20110912
  Transmission Date: 20120403
  Serious: Yes (Hospitalization)
  Sender: FDA-Public Use
  Company Number: US-BIOGENIDEC-2010BI045099

PATIENT
  Age: 49 Year
  Sex: Female

DRUGS (1)
  1. TYSABRI [Suspect]
     Indication: MULTIPLE SCLEROSIS
     Route: 042
     Dates: start: 20061002, end: 20101208

REACTIONS (4)
  - JC VIRUS INFECTION [None]
  - COGNITIVE DISORDER [None]
  - CENTRAL NERVOUS SYSTEM LESION [None]
  - PERSONALITY CHANGE [None]
